FAERS Safety Report 6104132-1 (Version None)
Quarter: 2009Q1

REPORT INFORMATION
  Report Type: 
  Country: None (occurrence: None)
  Receive Date: 20090305
  Receipt Date: 20090227
  Transmission Date: 20090719
  Serious: Yes (Other)
  Sender: FDA-Public Use
  Company Number: DE-ELI_LILLY_AND_COMPANY-DE200903000154

PATIENT
  Age: 58 Year
  Sex: Male
  Weight: 104 kg

DRUGS (4)
  1. BYETTA [Suspect]
     Indication: TYPE 2 DIABETES MELLITUS
     Dosage: 5 UG, UNK
     Route: 058
     Dates: start: 20090226, end: 20090226
  2. LANTUS [Concomitant]
     Dates: end: 20090225
  3. METFORMIN [Concomitant]
     Dosage: 1000 MG, 2/D
  4. NOVONORM [Concomitant]
     Dates: end: 20090226

REACTIONS (1)
  - SYNCOPE [None]
